FAERS Safety Report 4808184-8 (Version None)
Quarter: 2005Q4

REPORT INFORMATION
  Report Type: 
  Country: None (occurrence: None)
  Receive Date: 20051021
  Receipt Date: 20051007
  Transmission Date: 20060501
  Serious: Yes (Other)
  Sender: FDA-Public Use
  Company Number: HQWYE936510OCT05

PATIENT
  Age: 70 Year
  Sex: Female

DRUGS (2)
  1. PREMARIN [Suspect]
     Indication: OESTROGEN REPLACEMENT THERAPY
     Dosage: ORAL
     Route: 048
  2. PLAVIX [Concomitant]

REACTIONS (5)
  - ARTERIAL STENT INSERTION [None]
  - DRUG INEFFECTIVE [None]
  - HOT FLUSH [None]
  - INSOMNIA [None]
  - TRIPLE VESSEL BYPASS GRAFT [None]
